FAERS Safety Report 5900032-8 (Version None)
Quarter: 2008Q3

REPORT INFORMATION
  Report Type: 
  Country: None (occurrence: None)
  Receive Date: 20080925
  Receipt Date: 20080925
  Transmission Date: 20090109
  Serious: No
  Sender: FDA-Public Use
  Company Number: None

PATIENT
  Age: 68 Year
  Sex: Female
  Weight: 95.2554 kg

DRUGS (1)
  1. NORCO [Suspect]
     Indication: PROCEDURAL PAIN
     Dosage: 1-2 EVERU 4-6 HOURS
     Dates: start: 20080916, end: 20080917

REACTIONS (2)
  - AMNESIA [None]
  - NAUSEA [None]
